FAERS Safety Report 7765526 (Version 7)
Quarter: 2018Q3

REPORT INFORMATION
  Report Type: Spontaneous
  Country: FR (occurrence: FR)
  Receive Date: 20110119
  Receipt Date: 20180927
  Transmission Date: 20181010
  Serious: Yes (Other)
  Sender: FDA-Public Use
  Company Number: FR-ASTRAZENECA-2011SE01750

PATIENT
  Age: 71 Year
  Sex: Female
  Weight: 95 kg

DRUGS (4)
  1. TENORDATE [Suspect]
     Active Substance: ATENOLOL\NIFEDIPINE
     Indication: HYPERTENSION
     Route: 048
     Dates: start: 2007
  2. MEDIATOR [Suspect]
     Active Substance: BENFLUOREX
     Indication: CENTRAL OBESITY
     Route: 048
     Dates: start: 2002, end: 2009
  3. CRESTOR [Suspect]
     Active Substance: ROSUVASTATIN CALCIUM
     Indication: HYPERCHOLESTEROLAEMIA
     Route: 048
     Dates: start: 2004
  4. ZANIDIP [Concomitant]
     Active Substance: LERCANIDIPINE HYDROCHLORIDE
     Indication: PRODUCT USED FOR UNKNOWN INDICATION
     Route: 065

REACTIONS (6)
  - Aortic valve incompetence [Unknown]
  - Dizziness [Unknown]
  - Arrhythmia [Unknown]
  - Bradycardia [Unknown]
  - Malaise [Unknown]
  - Vertigo [Unknown]

NARRATIVE: CASE EVENT DATE: 2007
